FAERS Safety Report 10010066 (Version 2)
Quarter: 2014Q2

REPORT INFORMATION
  Report Type: Spontaneous
  Country: US (occurrence: US)
  Receive Date: 20140313
  Receipt Date: 20140520
  Transmission Date: 20141212
  Serious: Yes (Other)
  Sender: FDA-Public Use
  Company Number: US-RB-064446-14

PATIENT
  Sex: Male

DRUGS (1)
  1. SUBOXONE FILM [Suspect]
     Indication: DRUG DEPENDENCE
     Dosage: SUBOXONE FILM, 1 1/2 QD (DAILY)
     Route: 060
     Dates: start: 20110216

REACTIONS (2)
  - Convulsion [Recovered/Resolved]
  - Wrong technique in drug usage process [Not Recovered/Not Resolved]
